FAERS Safety Report 4563760-5 (Version None)
Quarter: 2005Q1

REPORT INFORMATION
  Report Type: 
  Country: None (occurrence: None)
  Receive Date: 20050125
  Receipt Date: 20050111
  Transmission Date: 20050727
  Serious: Yes (Hospitalization)
  Sender: FDA-Public Use
  Company Number: 05H-056-0286383-00

PATIENT
  Age: 70 Year
  Sex: Female

DRUGS (6)
  1. MORPHINE SULFATE INJ [Suspect]
     Dosage: INTRAVENOUS
     Route: 042
     Dates: start: 20041206, end: 20041208
  2. PANTOPRAZOLE [Suspect]
     Dosage: 40 MG, PER DAY, INTRAVENOUS
     Route: 042
     Dates: start: 20041206, end: 20041206
  3. AMBROXOL HYDROCHLORIDE [Suspect]
     Dosage: 3 DOSAGE FORMS, PER DAY, INTRAVENOUS
     Route: 042
     Dates: end: 20041208
  4. ENOXAPARIN SODIUM [Suspect]
     Dosage: 1 DOSAGE FORMS, 1 DF=40 MG/0.4 ML, INTRAVENOUS
     Route: 042
     Dates: end: 20041208
  5. OMEPRAZOLE [Suspect]
     Dosage: 1 DOSAGE FORMS, 1 DF=20 MG, PER DAY, INTRAGASTRAL, PER ORAL
     Route: 048
     Dates: start: 20041207, end: 20041208
  6. ACETAMINOPHEN [Suspect]
     Dosage: 4 G, PER DAY, INTRAVENOUS
     Route: 042
     Dates: start: 20041206, end: 20041208

REACTIONS (2)
  - NEUTROPENIA [None]
  - WHITE BLOOD CELL COUNT DECREASED [None]
